FAERS Safety Report 7551926-1 (Version None)
Quarter: 2011Q2

REPORT INFORMATION
  Report Type: 
  Country: None (occurrence: None)
  Receive Date: 20110616
  Receipt Date: 20110606
  Transmission Date: 20111010
  Serious: Yes (Other)
  Sender: FDA-Public Use
  Company Number: US-BAYER-2010-002825

PATIENT
  Sex: Female
  Weight: 149.66 kg

DRUGS (20)
  1. CHLORPHENIRAMINE W/PSEUDOEPHEDRINE [Concomitant]
  2. DROSPIRENONE AND ETHINYL ESTRADIOL [Suspect]
  3. HYDROCODONE BITARTRATE AND ACETAMINOPHEN [Concomitant]
  4. GABAPENTIN [Concomitant]
     Dosage: 60 MG, UNK
  5. PROTONIX [Concomitant]
     Dosage: 40 MG, UNK
  6. ACIPHEX [Concomitant]
     Dosage: 20 MG, UNK
  7. METHOCARBAMOL [Concomitant]
     Dosage: 750 MG, UNK
  8. FERROUS SULFATE TAB [Concomitant]
     Dosage: 325 MG, UNK
  9. PEPCID [Concomitant]
  10. YASMIN [Suspect]
     Indication: PRODUCT USED FOR UNKNOWN INDICATION
     Dosage: UNK
     Dates: start: 20010101, end: 20100101
  11. DIFLUCAN [Concomitant]
     Dosage: 150 MG, UNK
  12. NAPROXEN [Concomitant]
     Dosage: 500 MG, UNK
  13. PROMETHAZINE [Concomitant]
     Dosage: 25 MG, UNK
  14. CELEBREX [Concomitant]
     Dosage: 200 MG, UNK
  15. PSEUDOEPHEDRINE HCL [Concomitant]
     Dosage: 30 MG, UNK
  16. OMEPRAZOLE [Concomitant]
     Dosage: 20 MG, UNK
  17. CYCLOBENZAPRINE [Concomitant]
     Dosage: 10 MG, UNK
  18. AMITRIPTYLINE HYDROCHLORIDE [Concomitant]
     Dosage: 50 MG, UNK
  19. PROPOXYPHENE HYDROCHLORIDE [Concomitant]
  20. LORATADINE [Concomitant]
     Dosage: 10 MG, UNK

REACTIONS (5)
  - ABDOMINAL PAIN [None]
  - GALLBLADDER CHOLESTEROLOSIS [None]
  - GALLBLADDER DISORDER [None]
  - CHOLELITHIASIS [None]
  - CHOLECYSTITIS CHRONIC [None]
